FAERS Safety Report 17210906 (Version 1)
Quarter: 2019Q4

REPORT INFORMATION
  Report Type: Spontaneous
  Country: JP (occurrence: JP)
  Receive Date: 20191227
  Receipt Date: 20191227
  Transmission Date: 20200122
  Serious: Yes (Other)
  Sender: FDA-Public Use
  Company Number: JP-MALLINCKRODT-T201908913

PATIENT
  Age: 75 Year
  Sex: Female

DRUGS (3)
  1. DOMPERIDONE [Concomitant]
     Active Substance: DOMPERIDONE
     Indication: ADVERSE REACTION
     Dosage: UNK
     Route: 048
     Dates: start: 20191125
  2. TOARASET [Concomitant]
     Active Substance: ACETAMINOPHEN\TRAMADOL HYDROCHLORIDE
     Indication: FRACTURE PAIN
     Dosage: UNK
     Route: 048
     Dates: start: 20191125
  3. AMITIZA [Suspect]
     Active Substance: LUBIPROSTONE
     Indication: CONSTIPATION
     Dosage: UNK
     Route: 048
     Dates: start: 20191206

REACTIONS (3)
  - Condition aggravated [Unknown]
  - Prothrombin time prolonged [Unknown]
  - Anaemia [Unknown]

NARRATIVE: CASE EVENT DATE: 20191212
